FAERS Safety Report 9276699 (Version 1)
Quarter: 2013Q2

REPORT INFORMATION
  Report Type: Spontaneous
  Country: US (occurrence: US)
  Receive Date: 20130507
  Receipt Date: 20130507
  Transmission Date: 20140414
  Serious: Yes (Other)
  Sender: FDA-Public Use
  Company Number: PHEH2012US009745

PATIENT
  Sex: Female

DRUGS (10)
  1. DIOVAN [Suspect]
     Dosage: 80 MG, A DAY
  2. CARDIZEM CD [Concomitant]
     Dosage: 240 A DAY
  3. ADVAIR DISKUS [Concomitant]
  4. VENTOLINE INHALATOR [Concomitant]
  5. LASIX [Concomitant]
     Dosage: 80 (UNIT UNSPECIFIED) PER DAY
  6. NEXUM [Concomitant]
     Dosage: 40 (UNIT UNSPECIFIED) PER DAY
  7. RESTORIL [Concomitant]
     Dosage: 30 (UNIT UNSPECIFIED) PER DAY
  8. BABY ASPIRIN [Concomitant]
     Dosage: UNK UKN, QD
  9. HYDROCODONE [Concomitant]
     Dosage: 2 DF, PRN
  10. TYLENOL [Concomitant]

REACTIONS (9)
  - Cardiomyopathy [Unknown]
  - Cardiac valve disease [Unknown]
  - Cardiac murmur [Unknown]
  - Bundle branch block left [Unknown]
  - Dyspnoea [Unknown]
  - Breath sounds abnormal [Unknown]
  - Tachycardia [Unknown]
  - Heart rate irregular [Unknown]
  - Atrial flutter [Unknown]
